FAERS Safety Report 9891812 (Version 2)
Quarter: 2014Q1

REPORT INFORMATION
  Report Type: Spontaneous
  Country: US (occurrence: US)
  Receive Date: 20140212
  Receipt Date: 20140325
  Transmission Date: 20141002
  Serious: Yes (Death, Other)
  Sender: FDA-Public Use
  Company Number: US-PFIZER INC-2014038249

PATIENT
  Age: 59 Year
  Sex: Female

DRUGS (1)
  1. REVATIO [Suspect]
     Indication: PULMONARY ARTERIAL HYPERTENSION
     Dosage: ONE 20 MG TABLET THREE TIMES DAILY
     Dates: start: 20090409

REACTIONS (2)
  - Cerebrovascular accident [Fatal]
  - Intracranial aneurysm [Fatal]
